FAERS Safety Report 6751581-4 (Version None)
Quarter: 2010Q2

REPORT INFORMATION
  Report Type: 
  Country: None (occurrence: None)
  Receive Date: 20100526
  Receipt Date: 20100525
  Transmission Date: 20101027
  Serious: Yes (Other)
  Sender: FDA-Public Use
  Company Number: TCI2010A01330

PATIENT
  Age: 65 Year
  Sex: Male

DRUGS (3)
  1. ACTOS [Suspect]
     Indication: TYPE 2 DIABETES MELLITUS
     Dosage: 15 MG (15 MG, 1 D), PER ORAL
     Route: 048
     Dates: start: 20080325
  2. CALCIUM CHANNEL BLOCKERS [Concomitant]
  3. MMG COA REDUCTASE INHIBITORS [Concomitant]

REACTIONS (1)
  - ATRIAL FIBRILLATION [None]
